FAERS Safety Report 7757131-8 (Version None)
Quarter: 2011Q3

REPORT INFORMATION
  Report Type: 
  Country: None (occurrence: None)
  Receive Date: 20110916
  Receipt Date: 20110912
  Transmission Date: 20111222
  Serious: Yes (Disabling)
  Sender: FDA-Public Use
  Company Number: NO-ABBOTT-11P-122-0853960-00

PATIENT
  Sex: Female

DRUGS (4)
  1. CIMZIA [Suspect]
     Indication: PSORIATIC ARTHROPATHY
     Route: 058
     Dates: start: 20101201, end: 20110101
  2. METHOTREXATE [Concomitant]
     Indication: PRODUCT USED FOR UNKNOWN INDICATION
  3. HUMIRA [Suspect]
     Indication: PSORIATIC ARTHROPATHY
     Dates: start: 20060701, end: 20101201
  4. ENBREL [Suspect]
     Indication: PSORIATIC ARTHROPATHY
     Dates: start: 20040601, end: 20060701

REACTIONS (2)
  - NUCLEAR MAGNETIC RESONANCE IMAGING BRAIN ABNORMAL [None]
  - OPTIC NEURITIS [None]
